FAERS Safety Report 6669418-0 (Version None)
Quarter: 2010Q2

REPORT INFORMATION
  Report Type: 
  Country: None (occurrence: None)
  Receive Date: 20100406
  Receipt Date: 20100325
  Transmission Date: 20101027
  Serious: Yes (Life-Threatening, Hospitalization)
  Sender: FDA-Public Use
  Company Number: PL-PFIZER INC-2008014532

PATIENT
  Age: 50 Year
  Sex: Male
  Weight: 93.7 kg

DRUGS (13)
  1. FLUOROURACIL [Suspect]
     Indication: COLORECTAL CANCER METASTATIC
     Dosage: 37.5 MG, DAILY
     Route: 048
     Dates: start: 20080208, end: 20080212
  2. BLINDED *NO SUBJECT DRUG [Suspect]
     Indication: COLORECTAL CANCER METASTATIC
     Dosage: 37.5 MG, DAILY
     Route: 048
     Dates: start: 20080208, end: 20080212
  3. BLINDED *PLACEBO [Suspect]
     Indication: COLORECTAL CANCER METASTATIC
     Dosage: 37.5 MG, DAILY
     Route: 048
     Dates: start: 20080208, end: 20080212
  4. FLUOROURACIL [Suspect]
     Dosage: 37.5 MG, DAILY
     Route: 048
     Dates: start: 20080208, end: 20080212
  5. BLINDED SUNITINIB MALATE [Suspect]
     Indication: COLORECTAL CANCER METASTATIC
     Dosage: 37.5 MG, DAILY
     Route: 048
     Dates: start: 20080208, end: 20080212
  6. IRINOTECAN HCL [Suspect]
     Indication: COLORECTAL CANCER METASTATIC
     Dosage: 180 MG/M2, EVERY OTHER WEEK
     Route: 042
     Dates: start: 20080208, end: 20080208
  7. *CALCIUM FOLINATE [Suspect]
     Indication: COLORECTAL CANCER METASTATIC
     Dosage: 200 MG/M2, TDD 442, EVERY OTHER WEEK
     Route: 042
     Dates: start: 20080208, end: 20080208
  8. FLUOROURACIL [Suspect]
     Indication: COLORECTAL CANCER METASTATIC
     Dosage: 2400 MG/M2, EVERY OTHER WEEK
     Route: 042
     Dates: start: 20080208
  9. FLUOROURACIL [Suspect]
     Dosage: 400 MG/M2, EVERY OTHER WEEK
     Route: 042
     Dates: start: 20080208, end: 20080210
  10. IMIDAPRIL [Concomitant]
     Dosage: DAILY
     Route: 048
     Dates: start: 20070501
  11. METOPROLOL TARTRATE [Concomitant]
     Dosage: DAILY
     Route: 048
     Dates: start: 20070501
  12. ASPIRIN [Concomitant]
     Dosage: DAILY
     Route: 048
     Dates: start: 20070501
  13. INDAPAMIDE [Concomitant]
     Dosage: DAILY
     Route: 048
     Dates: start: 20070501

REACTIONS (2)
  - CARDIAC ARREST [None]
  - VENTRICULAR FIBRILLATION [None]
